FAERS Safety Report 4845781-8 (Version None)
Quarter: 2005Q4

REPORT INFORMATION
  Report Type: 
  Country: None (occurrence: None)
  Receive Date: 20051206
  Receipt Date: 20051117
  Transmission Date: 20060501
  Serious: Yes (Life-Threatening)
  Sender: FDA-Public Use
  Company Number: JP-BRISTOL-MYERS SQUIBB COMPANY-13186069

PATIENT
  Age: 70 Year
  Sex: Male

DRUGS (8)
  1. TAXOL [Suspect]
     Indication: NON-SMALL CELL LUNG CANCER
     Route: 041
     Dates: start: 20051116, end: 20051116
  2. DECADRON [Concomitant]
     Route: 042
     Dates: start: 20051116, end: 20051116
  3. ZANTAC [Concomitant]
     Route: 042
     Dates: start: 20051116, end: 20051116
  4. RESTAMIN [Concomitant]
     Route: 048
     Dates: start: 20051116, end: 20051116
  5. TANATRIL [Concomitant]
     Route: 048
     Dates: start: 19890101
  6. NORVASC [Concomitant]
     Route: 048
     Dates: start: 19890101, end: 20051117
  7. FLUITRAN [Concomitant]
     Route: 048
     Dates: start: 19890101, end: 20051117
  8. SALOBEL [Concomitant]
     Route: 048
     Dates: start: 19890101, end: 20051117

REACTIONS (2)
  - ANAPHYLACTIC SHOCK [None]
  - CARDIOMYOPATHY [None]
